FAERS Safety Report 6923691-X (Version None)
Quarter: 2010Q3

REPORT INFORMATION
  Report Type: 
  Country: None (occurrence: None)
  Receive Date: 20100813
  Receipt Date: 20100811
  Transmission Date: 20110219
  Serious: Yes (Hospitalization)
  Sender: FDA-Public Use
  Company Number: B0669432A

PATIENT
  Sex: Male

DRUGS (17)
  1. AUGMENTIN '125' [Suspect]
     Dosage: 1G THREE TIMES PER DAY
     Route: 048
     Dates: start: 20100601, end: 20100606
  2. PLAVIX [Suspect]
     Indication: PRODUCT USED FOR UNKNOWN INDICATION
     Dosage: 75MG PER DAY
     Route: 048
     Dates: start: 20100525, end: 20100610
  3. LEVOTHYROXINE SODIUM [Concomitant]
     Dosage: 50MCG PER DAY
     Route: 048
     Dates: start: 19980101
  4. MODOPAR [Concomitant]
     Dosage: 125MG FOUR TIMES PER DAY
     Route: 048
     Dates: start: 19980101
  5. PRAVASTATIN SODIUM [Concomitant]
     Dosage: 20MG TWICE PER DAY
     Route: 048
  6. ODRIK [Concomitant]
     Dosage: 2MG PER DAY
     Route: 048
  7. BUMEX [Concomitant]
     Dosage: 5MG PER DAY
     Route: 048
  8. KARDEGIC [Concomitant]
     Dosage: 75MG PER DAY
     Route: 065
  9. CALCIPARINE [Concomitant]
     Route: 065
     Dates: start: 20100530
  10. NEXIUM [Concomitant]
     Dosage: 20MG PER DAY
     Route: 048
  11. SPIRIVA [Concomitant]
     Dosage: 18MCG PER DAY
     Route: 045
  12. STILNOX [Concomitant]
     Dosage: 10MG AT NIGHT
     Route: 048
  13. CORDARONE [Concomitant]
     Route: 065
  14. TRIFLUCAN [Concomitant]
     Dosage: 200MG PER DAY
     Route: 065
  15. MOTILIUM [Concomitant]
     Dosage: 10MG THREE TIMES PER DAY
     Route: 065
  16. GAVISCON [Concomitant]
     Dosage: 3UNIT PER DAY
     Route: 065
  17. ANTIVITAMINS K [Concomitant]
     Route: 065
     Dates: end: 20100530

REACTIONS (11)
  - ANAEMIA [None]
  - BACTERIAL SEPSIS [None]
  - BONE MARROW FAILURE [None]
  - BONE MARROW MYELOGRAM ABNORMAL [None]
  - CONDITION AGGRAVATED [None]
  - KLEBSIELLA BACTERAEMIA [None]
  - LEUKOPENIA [None]
  - NEUTROPHIL COUNT DECREASED [None]
  - PANCYTOPENIA [None]
  - PLATELET COUNT DECREASED [None]
  - PYREXIA [None]
